FAERS Safety Report 6722474-3 (Version None)
Quarter: 2010Q2

REPORT INFORMATION
  Report Type: 
  Country: None (occurrence: None)
  Receive Date: 20100512
  Receipt Date: 20100503
  Transmission Date: 20101027
  Serious: Yes (Hospitalization, Other)
  Sender: FDA-Public Use
  Company Number: US-WYE-H14924910

PATIENT
  Age: 56 Year
  Sex: Female
  Weight: 61.74 kg

DRUGS (7)
  1. PREMARIN [Suspect]
     Indication: HORMONE REPLACEMENT THERAPY
     Route: 048
  2. HYDROCHLOROTHIAZIDE [Concomitant]
     Dosage: UNKNOWN
     Route: 065
  3. ZANTAC [Concomitant]
     Indication: GASTRIC DISORDER
     Dosage: UNKNOWN
     Route: 065
  4. VALIUM [Concomitant]
     Dosage: UNKNOWN
     Route: 065
  5. AMITRIPTLINE HYDROCHLORIDE TAB [Concomitant]
     Dosage: UNKNOWN
     Route: 065
  6. RAMIPRIL [Concomitant]
     Dosage: UNKNOWN
     Route: 065
  7. ALBUTEROL [Concomitant]
     Dosage: UNKNOWN
     Route: 055

REACTIONS (2)
  - COELIAC DISEASE [None]
  - COLITIS ISCHAEMIC [None]
